FAERS Safety Report 8905815 (Version 2)
Quarter: 2012Q4

REPORT INFORMATION
  Report Type: 
  Country: JP (occurrence: JP)
  Receive Date: 20121113
  Receipt Date: 20121203
  Transmission Date: 20130627
  Serious: Yes (Death)
  Sender: FDA-Public Use
  Company Number: JP-GLAXOSMITHKLINE-B0843708A

PATIENT
  Age: 85 Year
  Sex: Female

DRUGS (5)
  1. REVOLADE [Suspect]
     Indication: IDIOPATHIC THROMBOCYTOPENIC PURPURA
     Dosage: 12.5MG Per day
     Route: 048
     Dates: start: 20120620
  2. REVOLADE [Suspect]
     Indication: IDIOPATHIC THROMBOCYTOPENIC PURPURA
     Dosage: 25MG Per day
     Route: 048
     Dates: start: 20120630, end: 20120712
  3. ROMIPLATE [Concomitant]
     Route: 058
     Dates: start: 20120718
  4. PREDONINE [Concomitant]
     Indication: IDIOPATHIC THROMBOCYTOPENIC PURPURA
     Dosage: 5MG Per day
     Route: 048
     Dates: end: 20120712
  5. TAKEPRON [Concomitant]
     Route: 048

REACTIONS (3)
  - Pneumonia [Fatal]
  - Pulmonary haemorrhage [Not Recovered/Not Resolved]
  - Dysphagia [Not Recovered/Not Resolved]
